FAERS Safety Report 12377913 (Version 1)
Quarter: 2016Q2

REPORT INFORMATION
  Report Type: Spontaneous
  Country: US (occurrence: US)
  Receive Date: 20160517
  Receipt Date: 20160517
  Transmission Date: 20160815
  Serious: No
  Sender: FDA-Public Use
  Company Number: US-JNJFOC-20160420321

PATIENT
  Age: 49 Year
  Sex: Female
  Weight: 81.65 kg

DRUGS (1)
  1. TYLENOL EXTRA STRENGTH [Suspect]
     Active Substance: ACETAMINOPHEN
     Indication: BACK PAIN
     Dosage: 3 CAPLETS, ONCE
     Route: 048
     Dates: start: 20160417

REACTIONS (4)
  - Product taste abnormal [Unknown]
  - Incorrect dose administered [Unknown]
  - Product odour abnormal [Unknown]
  - Product physical issue [Unknown]

NARRATIVE: CASE EVENT DATE: 20160417
